FAERS Safety Report 4697190-2 (Version None)
Quarter: 2005Q2

REPORT INFORMATION
  Report Type: 
  Country: None (occurrence: None)
  Receive Date: 20050622
  Receipt Date: 20050609
  Transmission Date: 20051028
  Serious: Yes (Death)
  Sender: FDA-Public Use
  Company Number: FR-JNJFOC-20030905644

PATIENT
  Age: 35 Year
  Sex: Male
  Weight: 105 kg

DRUGS (12)
  1. DURAGESIC-100 [Suspect]
     Route: 062
     Dates: end: 20030824
  2. VIAGRA [Concomitant]
  3. DEROXAT [Concomitant]
  4. LEPTICUR [Concomitant]
  5. AVLOCARDYL [Concomitant]
  6. RISPERDAL [Concomitant]
  7. XANAX [Concomitant]
  8. PRAVACHOL [Concomitant]
  9. CLONAZEPAM [Concomitant]
  10. LIBRAX [Concomitant]
  11. LIBRAX [Concomitant]
  12. MYOLASTAN [Concomitant]

REACTIONS (5)
  - CEREBRAL ISCHAEMIA [None]
  - DRUG TOXICITY [None]
  - MYOCARDIAL INFARCTION [None]
  - PULMONARY OEDEMA [None]
  - RESPIRATORY DISTRESS [None]
